FAERS Safety Report 24140895 (Version 1)
Quarter: 2024Q3

REPORT INFORMATION
  Report Type: Spontaneous
  Country: US (occurrence: US)
  Receive Date: 20240726
  Receipt Date: 20240726
  Transmission Date: 20241017
  Serious: Yes (Other)
  Sender: LABORATOIRES SERB
  Company Number: US-SERB S.A.S.-2159646

PATIENT
  Age: 78 Year
  Sex: Female

DRUGS (4)
  1. VISTOGARD [Suspect]
     Active Substance: URIDINE TRIACETATE
     Indication: Diarrhoea
  2. VISTOGARD [Suspect]
     Active Substance: URIDINE TRIACETATE
     Indication: Chemotherapy toxicity attenuation
  3. VISTOGARD [Suspect]
     Active Substance: URIDINE TRIACETATE
     Indication: Mucosal inflammation
  4. CAPECITABINE [Suspect]
     Active Substance: CAPECITABINE

REACTIONS (6)
  - Hypokalaemia [Unknown]
  - Diarrhoea [Unknown]
  - Dehydration [Unknown]
  - Mucosal inflammation [Unknown]
  - Thrombocytopenia [Unknown]
  - Neutropenia [Unknown]
